FAERS Safety Report 5470846-X (Version None)
Quarter: 2007Q3

REPORT INFORMATION
  Report Type: 
  Country: None (occurrence: None)
  Receive Date: 20070925
  Receipt Date: 20070912
  Transmission Date: 20080115
  Serious: Yes (Other)
  Sender: FDA-Public Use
  Company Number: E2B_00011205

PATIENT
  Age: 60 Year
  Sex: 0

DRUGS (5)
  1. METFORMIN HCL [Suspect]
     Indication: DIABETES MELLITUS
     Dosage: 3 GRAIN (3 GM, 1D)
     Dates: end: 20060218
  2. MONOPRIL [Suspect]
     Indication: DIABETES MELLITUS
     Dosage: 20 MG (20 MG, 1 D) ORAL
     Route: 048
  3. GLICLAZIDE (GLICLAZIDE) [Suspect]
     Indication: DIABETES MELLITUS
     Dosage: 320 MG (320 MG, 1 D) ORAL
     Route: 048
  4. INDOMETHACIN [Suspect]
     Indication: OSTEOARTHRITIS
     Dosage: 75 MG (75 MG, 1 D)
  5. ASPIRIN [Suspect]
     Indication: DRUG USE FOR UNKNOWN INDICATION
     Dosage: 150 MG (150 MG, 1 D)

REACTIONS (2)
  - LACTIC ACIDOSIS [None]
  - RENAL FAILURE [None]
